FAERS Safety Report 20591213 (Version 5)
Quarter: 2022Q3

REPORT INFORMATION
  Report Type: Spontaneous
  Country: US (occurrence: US)
  Receive Date: 20220314
  Receipt Date: 20220812
  Transmission Date: 20221026
  Serious: No
  Sender: FDA-Public Use
  Company Number: US-SA-SAC20220309001821

PATIENT
  Age: 78 Year
  Sex: Male

DRUGS (1)
  1. DUPIXENT [Suspect]
     Active Substance: DUPILUMAB
     Indication: Nasal polyps
     Dosage: 300 MG, QOW
     Route: 058
     Dates: start: 202012

REACTIONS (12)
  - Ocular hyperaemia [Unknown]
  - Ear disorder [Unknown]
  - Asthma [Unknown]
  - Skin odour abnormal [Unknown]
  - Muckle-Wells syndrome [Unknown]
  - Vision blurred [Unknown]
  - Nasal polyps [Unknown]
  - Condition aggravated [Unknown]
  - Rash [Unknown]
  - Eye pruritus [Unknown]
  - Product use in unapproved indication [Unknown]
  - Intentional product misuse [Unknown]

NARRATIVE: CASE EVENT DATE: 20201201
